FAERS Safety Report 6471816-5 (Version None)
Quarter: 2009Q4

REPORT INFORMATION
  Report Type: 
  Country: None (occurrence: None)
  Receive Date: 20091203
  Receipt Date: 20080414
  Transmission Date: 20100525
  Serious: No
  Sender: FDA-Public Use
  Company Number: US-ELI_LILLY_AND_COMPANY-US200803003615

PATIENT
  Age: 35 Year
  Sex: Female
  Weight: 86.939 kg

DRUGS (9)
  1. CYMBALTA [Suspect]
     Indication: DEPRESSION
     Dosage: 30 MG, UNK
     Dates: start: 20071008, end: 20071014
  2. CYMBALTA [Suspect]
     Dosage: 60 MG, DAILY (1/D)
     Dates: start: 20071015, end: 20080211
  3. CYMBALTA [Suspect]
     Dosage: 30 MG, DAILY (1/D)
     Dates: start: 20080201, end: 20080301
  4. CYMBALTA [Suspect]
     Dosage: 30 MG, QOD
     Dates: start: 20080301, end: 20080301
  5. CYMBALTA [Suspect]
     Dosage: 30 MG, OTHER
     Dates: start: 20080301, end: 20080309
  6. CYMBALTA [Suspect]
     Dosage: 30 MG, UNK
     Dates: start: 20080314
  7. PREVACID [Concomitant]
     Indication: GASTROOESOPHAGEAL REFLUX DISEASE
     Dosage: 30 MG
     Dates: start: 19900101
  8. CLONAZEPAM [Concomitant]
     Indication: RESTLESS LEGS SYNDROME
     Dosage: 1 MG, UNK
     Dates: start: 20060707
  9. TAMIFLU [Concomitant]
     Indication: INFLUENZA
     Dosage: 75 MG, UNK
     Dates: start: 20080309, end: 20080312

REACTIONS (10)
  - CHEST DISCOMFORT [None]
  - CONFUSIONAL STATE [None]
  - DIZZINESS [None]
  - HEADACHE [None]
  - INFLUENZA LIKE ILLNESS [None]
  - NAUSEA [None]
  - VISUAL IMPAIRMENT [None]
  - VOMITING [None]
  - WEIGHT INCREASED [None]
  - WITHDRAWAL SYNDROME [None]
